FAERS Safety Report 23767865 (Version 1)
Quarter: 2024Q2

REPORT INFORMATION
  Report Type: Spontaneous
  Country: US (occurrence: None)
  Receive Date: 20240420
  Receipt Date: 20240420
  Transmission Date: 20240716
  Serious: Yes (Other)
  Sender: FDA-Public Use
  Company Number: None

PATIENT
  Age: 34 Year
  Sex: Female
  Weight: 63.45 kg

DRUGS (2)
  1. XEOMIN [Suspect]
     Active Substance: INCOBOTULINUMTOXINA
     Indication: Bruxism
     Dosage: OTHER STRENGTH : UNITS?OTHER QUANTITY : 1 VIAL?
     Dates: start: 20240308, end: 20240308
  2. NORETHINDRONE [Concomitant]
     Active Substance: NORETHINDRONE

REACTIONS (13)
  - Influenza [None]
  - Palpitations [None]
  - Tremor [None]
  - Weight decreased [None]
  - Muscle spasms [None]
  - Dry mouth [None]
  - Dyspnoea [None]
  - Dysphagia [None]
  - Skin burning sensation [None]
  - Asthenia [None]
  - Tachycardia [None]
  - Gait disturbance [None]
  - Hypophagia [None]

NARRATIVE: CASE EVENT DATE: 20240308
